FAERS Safety Report 9601936 (Version 1)
Quarter: 2013Q4

REPORT INFORMATION
  Report Type: Spontaneous
  Country: US (occurrence: US)
  Receive Date: 20131007
  Receipt Date: 20131007
  Transmission Date: 20140711
  Serious: Yes (Hospitalization)
  Sender: FDA-Public Use
  Company Number: US-UCBSA-099122

PATIENT
  Sex: Male

DRUGS (2)
  1. VIMPAT [Suspect]
  2. ROCEPHIN [Concomitant]
     Dosage: UNKNOWN

REACTIONS (3)
  - Hypoglycaemia [Unknown]
  - Convulsion [Recovered/Resolved]
  - Unevaluable event [Unknown]
